FAERS Safety Report 8227027-6 (Version None)
Quarter: 2012Q1

REPORT INFORMATION
  Report Type: 
  Country: None (occurrence: None)
  Receive Date: 20120322
  Receipt Date: 20120319
  Transmission Date: 20120608
  Serious: No
  Sender: FDA-Public Use
  Company Number: US-PFIZER INC-2012071526

PATIENT
  Sex: Male

DRUGS (4)
  1. GABAPENTIN [Suspect]
     Indication: PARAESTHESIA
     Dosage: UNK
     Dates: end: 20100801
  2. LYRICA [Suspect]
     Indication: BACK DISORDER
     Dosage: 75 MG, 1X/DAY
     Dates: start: 20100919, end: 20100925
  3. LYRICA [Suspect]
     Dosage: 150 MG, 1X/DAY
     Dates: start: 20100926, end: 20110317
  4. LYRICA [Suspect]
     Dosage: 225 MG, 1X/DAY
     Dates: start: 20110318

REACTIONS (2)
  - DRUG INEFFECTIVE [None]
  - ADVERSE EVENT [None]
